FAERS Safety Report 15545248 (Version 1)
Quarter: 2018Q4

REPORT INFORMATION
  Report Type: Spontaneous
  Country: US (occurrence: US)
  Receive Date: 20181024
  Receipt Date: 20181024
  Transmission Date: 20190205
  Serious: No
  Sender: FDA-Public Use
  Company Number: PHEH2018US044632

PATIENT
  Age: 12 Month
  Sex: Female

DRUGS (1)
  1. DABRAFENIB [Suspect]
     Active Substance: DABRAFENIB
     Indication: LANGERHANS^ CELL HISTIOCYTOSIS
     Dosage: 30 MG, BID
     Route: 065

REACTIONS (5)
  - Drug intolerance [Unknown]
  - Bone disorder [Unknown]
  - Splenomegaly [Unknown]
  - Hepatomegaly [Unknown]
  - Lymphadenopathy [Unknown]
